FAERS Safety Report 10024260 (Version 1)
Quarter: 2014Q1

REPORT INFORMATION
  Report Type: Spontaneous
  Country: US (occurrence: None)
  Receive Date: 20140318
  Receipt Date: 20140318
  Transmission Date: 20141002
  Serious: Yes (Hospitalization)
  Sender: FDA-Public Use
  Company Number: None

PATIENT
  Age: 61 Year
  Sex: Female
  Weight: 72 kg

DRUGS (4)
  1. PEMETREXED [Suspect]
     Indication: BREAST CANCER METASTATIC
     Route: 042
     Dates: start: 20130620
  2. PEMETREXED [Suspect]
     Indication: METASTASES TO BONE
     Route: 042
     Dates: start: 20130620
  3. PEMETREXED [Suspect]
     Indication: METASTASES TO LIVER
     Route: 042
     Dates: start: 20130620
  4. SORAFENIB [Suspect]
     Route: 048
     Dates: start: 20130620

REACTIONS (1)
  - Abdominal pain [None]
